FAERS Safety Report 24567581 (Version 2)
Quarter: 2024Q4

REPORT INFORMATION
  Report Type: Spontaneous
  Country: US (occurrence: US)
  Receive Date: 20241031
  Receipt Date: 20241106
  Transmission Date: 20250115
  Serious: No
  Sender: ABBVIE
  Company Number: US-ABBVIE-5983337

PATIENT
  Sex: Female

DRUGS (1)
  1. LO LOESTRIN FE [Suspect]
     Active Substance: ETHINYL ESTRADIOL\NORETHINDRONE ACETATE
     Indication: Menopause
     Route: 048
     Dates: start: 20241021, end: 20241028

REACTIONS (11)
  - Palpitations [Unknown]
  - Off label use [Unknown]
  - Dizziness [Unknown]
  - Initial insomnia [Unknown]
  - Headache [Unknown]
  - Fatigue [Recovering/Resolving]
  - Nausea [Unknown]
  - Pruritus [Unknown]
  - Skin exfoliation [Unknown]
  - Malaise [Recovering/Resolving]
  - Dyspnoea [Unknown]

NARRATIVE: CASE EVENT DATE: 20241001
